FAERS Safety Report 16629459 (Version 1)
Quarter: 2019Q3

REPORT INFORMATION
  Report Type: Spontaneous
  Country: US (occurrence: US)
  Receive Date: 20190612
  Receipt Date: 20190612
  Transmission Date: 20191004
  Serious: Yes (Hospitalization)
  Sender: FDA-Public Use
  Company Number: None

PATIENT
  Age: 46 Year
  Sex: Female

DRUGS (8)
  1. CEFUROXIME. [Concomitant]
     Active Substance: CEFUROXIME
  2. MORPHINE SUL [Concomitant]
     Active Substance: MORPHINE SULFATE
  3. CYCLOBENZAPR [Concomitant]
     Active Substance: CYCLOBENZAPRINE
  4. DESVENLAFAX [Concomitant]
  5. ENBREL [Suspect]
     Active Substance: ETANERCEPT
     Indication: RHEUMATOID ARTHRITIS
     Route: 058
     Dates: start: 20180727
  6. URSPDIOL [Concomitant]
  7. TOPIRAMATE. [Concomitant]
     Active Substance: TOPIRAMATE
  8. BUPROPION. [Concomitant]
     Active Substance: BUPROPION

REACTIONS (3)
  - Surgery [None]
  - Therapy cessation [None]
  - Condition aggravated [None]

NARRATIVE: CASE EVENT DATE: 20190422
